FAERS Safety Report 6643558-4 (Version None)
Quarter: 2010Q1

REPORT INFORMATION
  Report Type: 
  Country: None (occurrence: None)
  Receive Date: 20100320
  Receipt Date: 20100318
  Transmission Date: 20100710
  Serious: Yes (Other)
  Sender: FDA-Public Use
  Company Number: BR-ROXANE LABORATORIES, INC.-2010-RO-00275RO

PATIENT
  Age: 78 Year
  Sex: Female

DRUGS (4)
  1. SERTRALINE HCL [Suspect]
     Indication: DEPRESSION
  2. SERTRALINE HCL [Suspect]
  3. VENLAFAXINE [Concomitant]
     Indication: DEPRESSION
  4. BETAMETHASONE [Concomitant]
     Indication: MOUTH ULCERATION
     Route: 048

REACTIONS (1)
  - MOUTH ULCERATION [None]
